FAERS Safety Report 12666653 (Version 3)
Quarter: 2016Q4

REPORT INFORMATION
  Report Type: Spontaneous
  Country: BR (occurrence: BR)
  Receive Date: 20160819
  Receipt Date: 20161111
  Transmission Date: 20170207
  Serious: Yes (Hospitalization)
  Sender: FDA-Public Use
  Company Number: BR-ROCHE-1814636

PATIENT
  Sex: Female

DRUGS (5)
  1. RIVOTRIL [Suspect]
     Active Substance: CLONAZEPAM
     Indication: NERVOUSNESS
  2. AAS [Concomitant]
     Active Substance: ASPIRIN
  3. LOSARTAN. [Concomitant]
     Active Substance: LOSARTAN
  4. HYDROCHLOROTHIAZIDE. [Concomitant]
     Active Substance: HYDROCHLOROTHIAZIDE
  5. RIVOTRIL [Suspect]
     Active Substance: CLONAZEPAM
     Indication: HYPERTENSION
     Dosage: 1/2 TABLET IN THE MORNING AND 1/2 TABLET AT NIGHT
     Route: 065

REACTIONS (6)
  - Abdominal pain [Unknown]
  - Tongue discomfort [Unknown]
  - Product colour issue [Unknown]
  - Nausea [Unknown]
  - Renal disorder [Unknown]
  - Product use issue [Unknown]

NARRATIVE: CASE EVENT DATE: 201607
